FAERS Safety Report 5830349-7 (Version None)
Quarter: 2008Q3

REPORT INFORMATION
  Report Type: 
  Country: None (occurrence: None)
  Receive Date: 20080801
  Receipt Date: 20080724
  Transmission Date: 20090109
  Serious: Yes (Hospitalization)
  Sender: FDA-Public Use
  Company Number: BR-ABBOTT-08P-020-0457086-01

PATIENT
  Sex: Male
  Weight: 60 kg

DRUGS (11)
  1. KALETRA [Suspect]
     Indication: HIV INFECTION
     Dosage: 400/100 MG
     Route: 048
     Dates: start: 20071127, end: 20080629
  2. FLUCONAZOLE [Concomitant]
     Indication: ORAL CANDIDIASIS
     Dates: start: 20080115, end: 20080119
  3. FLUCONAZOLE [Concomitant]
     Dates: start: 20071130, end: 20071204
  4. PYRITHIONE ZINC [Concomitant]
     Indication: SEBORRHOEIC DERMATITIS
     Dates: start: 20080125, end: 20080201
  5. SUPRADYN [Concomitant]
     Indication: MEDICAL DIET
     Dates: start: 20080301, end: 20080430
  6. SUPRADYN [Concomitant]
     Dates: start: 20071217, end: 20080101
  7. FERROUS SULFATE TAB [Concomitant]
     Indication: MEDICAL DIET
     Dates: start: 20080123
  8. BROMAZEPAM [Concomitant]
     Indication: ANXIETY
     Dates: start: 20071130, end: 20071130
  9. COTRIMOXAZOLE [Concomitant]
     Indication: NEUROTOXICITY
     Dates: start: 20071217
  10. COTRIMOXAZOLE [Concomitant]
     Indication: PNEUMOCYSTIS JIROVECI PNEUMONIA
  11. COTRIMOXAZOLE [Concomitant]
     Indication: PROPHYLAXIS

REACTIONS (4)
  - CHOLURIA [None]
  - JAUNDICE [None]
  - NAUSEA [None]
  - PYREXIA [None]
